FAERS Safety Report 11283730 (Version 1)
Quarter: 2015Q3

REPORT INFORMATION
  Report Type: Spontaneous
  Country: JP (occurrence: JP)
  Receive Date: 20150720
  Receipt Date: 20150720
  Transmission Date: 20151125
  Serious: Yes (Other)
  Sender: FDA-Public Use
  Company Number: JP-JNJFOC-20150706950

PATIENT

DRUGS (14)
  1. ITRACONAZOLE. [Suspect]
     Active Substance: ITRACONAZOLE
     Indication: PANCREATIC CARCINOMA
     Dosage: DAYS -2 TO 2
     Route: 048
  2. GEMCITABINE [Suspect]
     Active Substance: GEMCITABINE\GEMCITABINE HYDROCHLORIDE
     Indication: NEUROPATHY PERIPHERAL
     Route: 042
  3. GEMCITABINE [Suspect]
     Active Substance: GEMCITABINE\GEMCITABINE HYDROCHLORIDE
     Indication: PANCREATIC CARCINOMA
     Route: 042
  4. CARBOPLATIN. [Suspect]
     Active Substance: CARBOPLATIN
     Indication: PANCREATIC CARCINOMA
     Dosage: REDUCED BY 10%
     Route: 042
  5. CARBOPLATIN. [Suspect]
     Active Substance: CARBOPLATIN
     Indication: NEUROPATHY PERIPHERAL
     Dosage: 4 MG/MIN/ML
     Route: 042
  6. ITRACONAZOLE. [Suspect]
     Active Substance: ITRACONAZOLE
     Indication: NEUROPATHY PERIPHERAL
     Dosage: DAYS -2 TO 2
     Route: 048
  7. DOCETAXEL. [Suspect]
     Active Substance: DOCETAXEL
     Indication: PANCREATIC CARCINOMA
     Route: 042
  8. IRINOTECAN [Suspect]
     Active Substance: IRINOTECAN
     Indication: NEUROPATHY PERIPHERAL
     Route: 065
  9. DOCETAXEL. [Suspect]
     Active Substance: DOCETAXEL
     Indication: NEUROPATHY PERIPHERAL
     Route: 042
  10. CARBOPLATIN. [Suspect]
     Active Substance: CARBOPLATIN
     Indication: NEUROPATHY PERIPHERAL
     Dosage: REDUCED BY 10%
     Route: 042
  11. DOCETAXEL. [Suspect]
     Active Substance: DOCETAXEL
     Indication: NEUROPATHY PERIPHERAL
     Dosage: REDUCED BY 5 MG/M2
     Route: 042
  12. DOCETAXEL. [Suspect]
     Active Substance: DOCETAXEL
     Indication: PANCREATIC CARCINOMA
     Dosage: REDUCED BY 5 MG/M2
     Route: 042
  13. IRINOTECAN [Suspect]
     Active Substance: IRINOTECAN
     Indication: PANCREATIC CARCINOMA
     Route: 065
  14. CARBOPLATIN. [Suspect]
     Active Substance: CARBOPLATIN
     Indication: PANCREATIC CARCINOMA
     Dosage: 4 MG/MIN/ML
     Route: 042

REACTIONS (6)
  - Thrombocytopenia [Unknown]
  - Haemoglobin decreased [Unknown]
  - Febrile neutropenia [Recovered/Resolved]
  - Neutropenia [Unknown]
  - Product use issue [Unknown]
  - Alanine aminotransferase increased [Unknown]
